FAERS Safety Report 20079114 (Version 1)
Quarter: 2021Q4

REPORT INFORMATION
  Report Type: Spontaneous
  Country: DE (occurrence: DE)
  Receive Date: 20211117
  Receipt Date: 20211117
  Transmission Date: 20220303
  Serious: Yes (Hospitalization)
  Sender: FDA-Public Use
  Company Number: DE-BIOGEN-2021BI01066851

PATIENT
  Age: 58 Year
  Sex: Male

DRUGS (2)
  1. DALFAMPRIDINE [Suspect]
     Active Substance: DALFAMPRIDINE
     Indication: Gait disturbance
     Route: 048
  2. FENTANYL [Concomitant]
     Active Substance: FENTANYL
     Indication: Pain
     Route: 065

REACTIONS (1)
  - Trigeminal neuralgia [Unknown]

NARRATIVE: CASE EVENT DATE: 20210301
